FAERS Safety Report 7535975-5 (Version None)
Quarter: 2011Q2

REPORT INFORMATION
  Report Type: 
  Country: None (occurrence: None)
  Receive Date: 20110607
  Receipt Date: 20110607
  Transmission Date: 20111010
  Serious: Yes (Life-Threatening, Hospitalization)
  Sender: FDA-Public Use
  Company Number: None

PATIENT
  Sex: Male
  Weight: 82.5547 kg

DRUGS (1)
  1. TOPAMAX [Suspect]
     Indication: PETIT MAL EPILEPSY
     Dosage: 100MG 2X/DAY MOUTH
     Route: 048
     Dates: start: 20100301, end: 20110301

REACTIONS (1)
  - DYSPNOEA [None]
